FAERS Safety Report 14294606 (Version 1)
Quarter: 2017Q4

REPORT INFORMATION
  Report Type: Spontaneous
  Country: US (occurrence: US)
  Receive Date: 20171218
  Receipt Date: 20171218
  Transmission Date: 20180321
  Serious: Yes (Hospitalization, Other)
  Sender: FDA-Public Use
  Company Number: US-BIOGEN-2015BI043061

PATIENT
  Age: 43 Year
  Sex: Female

DRUGS (6)
  1. HIPRIX [Concomitant]
     Indication: PRODUCT USED FOR UNKNOWN INDICATION
     Route: 065
  2. TYSABRI [Suspect]
     Active Substance: NATALIZUMAB
     Route: 042
     Dates: start: 20141210, end: 20150512
  3. AMPYRA [Concomitant]
     Active Substance: DALFAMPRIDINE
     Indication: PRODUCT USED FOR UNKNOWN INDICATION
     Route: 065
     Dates: start: 2014
  4. TYSABRI [Suspect]
     Active Substance: NATALIZUMAB
     Indication: MULTIPLE SCLEROSIS
     Route: 042
  5. DOXAZOSIN [Concomitant]
     Active Substance: DOXAZOSIN\DOXAZOSIN MESYLATE
     Indication: PRODUCT USED FOR UNKNOWN INDICATION
     Route: 065
  6. NORVASC [Concomitant]
     Active Substance: AMLODIPINE BESYLATE
     Indication: BLOOD PRESSURE MEASUREMENT
     Route: 065

REACTIONS (20)
  - Blister [Not Recovered/Not Resolved]
  - Drug ineffective [Unknown]
  - Bipolar disorder [Not Recovered/Not Resolved]
  - General physical health deterioration [Unknown]
  - Fear [Unknown]
  - Abdominal pain upper [Unknown]
  - Chest pain [Unknown]
  - Bone infarction [Recovered/Resolved]
  - Multiple sclerosis relapse [Not Recovered/Not Resolved]
  - Urinary tract infection [Recovered/Resolved]
  - Irritable bowel syndrome [Not Recovered/Not Resolved]
  - Nausea [Unknown]
  - Chills [Unknown]
  - Feeling hot [Recovered/Resolved]
  - Secondary progressive multiple sclerosis [Not Recovered/Not Resolved]
  - Pruritus [Unknown]
  - Feeling cold [Recovered/Resolved]
  - Chest discomfort [Unknown]
  - Osteomyelitis [Not Recovered/Not Resolved]
  - Peripheral swelling [Not Recovered/Not Resolved]

NARRATIVE: CASE EVENT DATE: 201501
